FAERS Safety Report 11124354 (Version 1)
Quarter: 2015Q2

REPORT INFORMATION
  Report Type: Spontaneous
  Country: US (occurrence: None)
  Receive Date: 20150519
  Receipt Date: 20150519
  Transmission Date: 20150821
  Serious: Yes (Other)
  Sender: FDA-Public Use
  Company Number: None

PATIENT
  Age: 61 Year
  Sex: Female
  Weight: 131.54 kg

DRUGS (11)
  1. ADVIL [Concomitant]
     Active Substance: IBUPROFEN
  2. PEPTO-BISMAL [Concomitant]
  3. LOSARTAN [Concomitant]
     Active Substance: LOSARTAN
  4. IMODIUM [Concomitant]
     Active Substance: LOPERAMIDE HYDROCHLORIDE
  5. INVOKANA [Suspect]
     Active Substance: CANAGLIFLOZIN
     Indication: TYPE 2 DIABETES MELLITUS
     Dosage: 1 PILL BEFORE BREAKFAST  ONCE DAILY TAKEN BY MOUTH
     Route: 048
     Dates: start: 20150512
  6. METFORMIN [Concomitant]
     Active Substance: METFORMIN HYDROCHLORIDE
  7. VICTOZA [Concomitant]
     Active Substance: LIRAGLUTIDE
  8. AMLODIPINE [Concomitant]
     Active Substance: AMLODIPINE BESYLATE
  9. ZYRTEC [Concomitant]
     Active Substance: CETIRIZINE HYDROCHLORIDE
  10. PRILOSEC [Concomitant]
     Active Substance: OMEPRAZOLE MAGNESIUM
  11. DRAMAMINE [Concomitant]
     Active Substance: DIMENHYDRINATE

REACTIONS (2)
  - Vulvovaginal mycotic infection [None]
  - Urinary tract infection fungal [None]

NARRATIVE: CASE EVENT DATE: 20150512
